FAERS Safety Report 18244922 (Version 1)
Quarter: 2020Q3

REPORT INFORMATION
  Report Type: Spontaneous
  Country: US (occurrence: US)
  Receive Date: 20200908
  Receipt Date: 20200908
  Transmission Date: 20201103
  Serious: Yes (Hospitalization)
  Sender: FDA-Public Use
  Company Number: US-FRESENIUS KABI-FK202009166

PATIENT

DRUGS (1)
  1. DILAUDID [Suspect]
     Active Substance: HYDROMORPHONE HYDROCHLORIDE
     Indication: PRODUCT USED FOR UNKNOWN INDICATION
     Dosage: UNKNOWN
     Route: 065

REACTIONS (5)
  - Fungal endocarditis [Unknown]
  - Imprisonment [Unknown]
  - Multiple use of single-use product [Unknown]
  - Drug dependence [Unknown]
  - Paranoia [Unknown]
